FAERS Safety Report 17286555 (Version 1)
Quarter: 2020Q1

REPORT INFORMATION
  Report Type: Spontaneous
  Country: DE (occurrence: DE)
  Receive Date: 20200119
  Receipt Date: 20200119
  Transmission Date: 20200409
  Serious: Yes (Other)
  Sender: FDA-Public Use
  Company Number: NVSC2020DE007534

PATIENT
  Age: 8 Year
  Sex: Female

DRUGS (3)
  1. METHOTREXATE. [Suspect]
     Active Substance: METHOTREXATE
     Indication: UVEITIS
     Dosage: 10 MG, QW
     Route: 048
     Dates: start: 201802
  2. LOTEMAX [Concomitant]
     Active Substance: LOTEPREDNOL ETABONATE
     Indication: UVEITIS
     Dosage: 2 DF, QD
     Route: 061
     Dates: start: 201810
  3. HUMIRA [Concomitant]
     Active Substance: ADALIMUMAB
     Indication: UVEITIS
     Dosage: 20 MG, EVERY 14 DAYS
     Route: 042
     Dates: start: 201807

REACTIONS (3)
  - Enteritis [Recovering/Resolving]
  - Colitis ulcerative [Unknown]
  - Product use in unapproved indication [Unknown]

NARRATIVE: CASE EVENT DATE: 201802
